FAERS Safety Report 24980022 (Version 1)
Quarter: 2025Q1

REPORT INFORMATION
  Report Type: Report from Study
  Country: IT (occurrence: IT)
  Receive Date: 20250218
  Receipt Date: 20250218
  Transmission Date: 20250409
  Serious: Yes (Life-Threatening, Hospitalization, Other)
  Sender: BRISTOL-MYERS SQUIBB COMPANY
  Company Number: IT-BRISTOL-MYERS SQUIBB COMPANY-2025-019849

PATIENT
  Age: 54 Year
  Sex: Female

DRUGS (2)
  1. MAVACAMTEN [Suspect]
     Active Substance: MAVACAMTEN
     Indication: Hypertrophic cardiomyopathy
     Route: 048
     Dates: start: 20250131, end: 20250202
  2. METOPROLOL [Concomitant]
     Active Substance: METOPROLOL
     Dosage: 1/4 PILL
     Route: 048

REACTIONS (1)
  - Hypersensitivity [Recovered/Resolved]

NARRATIVE: CASE EVENT DATE: 20250203
